FAERS Safety Report 14318294 (Version 4)
Quarter: 2018Q2

REPORT INFORMATION
  Report Type: Spontaneous
  Country: FR (occurrence: FR)
  Receive Date: 20171222
  Receipt Date: 20180613
  Transmission Date: 20180711
  Serious: Yes (Hospitalization, Other)
  Sender: FDA-Public Use
  Company Number: PHHY2017FR190731

PATIENT
  Age: 13 Year
  Sex: Male

DRUGS (29)
  1. METHOTREXATE. [Suspect]
     Active Substance: METHOTREXATE
     Dosage: 15 MG, QD
     Route: 037
  2. VINCRISTINE [Suspect]
     Active Substance: VINCRISTINE
     Dosage: 2 MG, QD
     Route: 042
     Dates: start: 20170915
  3. PEGASPARGASE [Suspect]
     Active Substance: PEGASPARGASE
     Dosage: 2175 IU, UNK
     Route: 042
  4. CYTARABINE. [Suspect]
     Active Substance: CYTARABINE
     Dosage: 30 MG, QD
     Route: 037
  5. DAUNORUBICIN [Suspect]
     Active Substance: DAUNORUBICIN
     Dosage: 52.5 MG, QD
     Route: 042
     Dates: start: 20170915
  6. PEGASPARGASE [Suspect]
     Active Substance: PEGASPARGASE
     Indication: ACUTE LYMPHOCYTIC LEUKAEMIA
     Dosage: 1800 IU, QD
     Route: 042
     Dates: start: 20170121
  7. PEGASPARGASE [Suspect]
     Active Substance: PEGASPARGASE
     Dosage: 1800 IU, UNK
     Route: 042
  8. DAUNORUBICIN [Suspect]
     Active Substance: DAUNORUBICIN
     Dosage: 52.5 MG, QD
     Route: 042
     Dates: start: 20171006
  9. PEGASPARGASE [Suspect]
     Active Substance: PEGASPARGASE
     Dosage: 2175 IU, QD
     Route: 042
     Dates: start: 20170919, end: 20171003
  10. METHOTREXATE. [Suspect]
     Active Substance: METHOTREXATE
     Indication: ACUTE LYMPHOCYTIC LEUKAEMIA
     Dosage: 12 MG,
     Route: 037
     Dates: start: 20170110, end: 20170202
  11. METHOTREXATE. [Suspect]
     Active Substance: METHOTREXATE
     Dosage: 15 MG, QD
     Route: 037
     Dates: start: 20171002
  12. PREDNISONE. [Suspect]
     Active Substance: PREDNISONE
     Dosage: 110 MG, QD
     Route: 048
     Dates: start: 20171006
  13. HYDROCORTISONE. [Suspect]
     Active Substance: HYDROCORTISONE
     Dosage: 15 MG, QD
     Route: 037
     Dates: start: 20171002
  14. DAUNORUBICIN [Suspect]
     Active Substance: DAUNORUBICIN
     Indication: ACUTE MYELOID LEUKAEMIA
     Dosage: 22 MG, UNK
     Route: 042
     Dates: start: 20170117, end: 20170207
  15. VINCRISTINE [Suspect]
     Active Substance: VINCRISTINE
     Indication: ACUTE LYMPHOCYTIC LEUKAEMIA
     Dosage: 1.1 MG, UNK
     Route: 042
     Dates: start: 20170117, end: 20170207
  16. VINCRISTINE [Suspect]
     Active Substance: VINCRISTINE
     Dosage: 2 MG, QD
     Route: 042
     Dates: start: 20171006
  17. DAUNORUBICIN [Suspect]
     Active Substance: DAUNORUBICIN
     Dosage: 52.5 MG, QD
     Route: 042
     Dates: start: 20170915, end: 20171006
  18. PEGASPARGASE [Suspect]
     Active Substance: PEGASPARGASE
     Dosage: 2175 IU, QD
     Route: 042
     Dates: start: 20171003, end: 20171003
  19. METHOTREXATE. [Suspect]
     Active Substance: METHOTREXATE
     Dosage: 15 MG, QD
     Route: 037
     Dates: start: 20170920, end: 20171002
  20. CYTARABINE. [Suspect]
     Active Substance: CYTARABINE
     Indication: ACUTE LYMPHOCYTIC LEUKAEMIA
     Dosage: 30 MG, QD
     Route: 037
     Dates: start: 20170122, end: 20170202
  21. PREDNISONE. [Suspect]
     Active Substance: PREDNISONE
     Indication: ACUTE LYMPHOCYTIC LEUKAEMIA
     Dosage: 45 MG, UNK
     Route: 048
     Dates: start: 20170117, end: 20170213
  22. HYDROCORTISONE. [Suspect]
     Active Substance: HYDROCORTISONE
     Indication: ACUTE LYMPHOCYTIC LEUKAEMIA
     Dosage: 15 MG, UNK
     Route: 037
     Dates: start: 20170122, end: 20170202
  23. HYDROCORTISONE. [Suspect]
     Active Substance: HYDROCORTISONE
     Dosage: 15 MG, QD
     Route: 037
     Dates: start: 20170920
  24. VINCRISTINE [Suspect]
     Active Substance: VINCRISTINE
     Dosage: 2 MG, QD
     Route: 042
  25. PREDNISONE. [Suspect]
     Active Substance: PREDNISONE
     Dosage: 110 MG, QD
     Route: 048
     Dates: start: 20170915
  26. PREDNISONE. [Suspect]
     Active Substance: PREDNISONE
     Dosage: 110 MG, QD
     Route: 048
  27. DAUNORUBICIN [Suspect]
     Active Substance: DAUNORUBICIN
     Dosage: 52.5 MG, QD
     Route: 042
  28. CYTARABINE. [Suspect]
     Active Substance: CYTARABINE
     Dosage: 30 MG, QD
     Route: 037
     Dates: start: 20170920
  29. HYDROCORTISONE. [Suspect]
     Active Substance: HYDROCORTISONE
     Dosage: 15 MG, QD
     Route: 037

REACTIONS (2)
  - Hypofibrinogenaemia [Recovered/Resolved]
  - Hypofibrinogenaemia [Recovered/Resolved]

NARRATIVE: CASE EVENT DATE: 20170202
